FAERS Safety Report 18973427 (Version 1)
Quarter: 2021Q1

REPORT INFORMATION
  Report Type: Spontaneous
  Country: IL (occurrence: IL)
  Receive Date: 20210305
  Receipt Date: 20210305
  Transmission Date: 20210420
  Serious: Yes (Other)
  Sender: FDA-Public Use
  Company Number: IL-GLAXOSMITHKLINE-IL2021EME057014

PATIENT
  Age: 58 Year
  Sex: Female

DRUGS (6)
  1. CARDILOC [Suspect]
     Active Substance: BISOPROLOL FUMARATE
     Indication: HYPERTENSION
     Dosage: UNK UNK, QD
  2. CARDILOC [Suspect]
     Active Substance: BISOPROLOL FUMARATE
     Indication: HEART RATE INCREASED
  3. OLAPARIB. [Suspect]
     Active Substance: OLAPARIB
     Indication: OVARIAN CANCER STAGE III
  4. ZEJULA [Suspect]
     Active Substance: NIRAPARIB
     Indication: OVARIAN CANCER STAGE III
     Dosage: 200 MG, QD
  5. ZEJULA [Suspect]
     Active Substance: NIRAPARIB
     Dosage: 100 MG, QD
  6. CISPLATIN. [Suspect]
     Active Substance: CISPLATIN
     Indication: OVARIAN CANCER

REACTIONS (12)
  - Neoplasm [Unknown]
  - Condition aggravated [Unknown]
  - Ill-defined disorder [Unknown]
  - Dyspnoea [Unknown]
  - Syncope [Unknown]
  - Ovarian cancer recurrent [Unknown]
  - Hypertension [Recovering/Resolving]
  - Drug ineffective [Unknown]
  - Bone marrow failure [Unknown]
  - Heart rate increased [Unknown]
  - Head discomfort [Unknown]
  - Blood pressure fluctuation [Unknown]
